FAERS Safety Report 11152694 (Version 3)
Quarter: 2017Q2

REPORT INFORMATION
  Report Type: Spontaneous
  Country: US (occurrence: US)
  Receive Date: 20150601
  Receipt Date: 20170612
  Transmission Date: 20170829
  Serious: Yes (Other)
  Sender: FDA-Public Use
  Company Number: US-PURDUE-USA-2015-0123816

PATIENT
  Sex: Female

DRUGS (1)
  1. HYDROCODONE BITARTRATE AND ACETAMINOPHEN [Suspect]
     Active Substance: ACETAMINOPHEN\HYDROCODONE BITARTRATE
     Indication: PAIN
     Dosage: 10/325 MG, UNK
     Route: 048
     Dates: start: 20150527

REACTIONS (5)
  - Gait disturbance [Unknown]
  - Spinal decompression [Unknown]
  - Spinal fusion surgery [Unknown]
  - Pain [Unknown]
  - Post laminectomy syndrome [Unknown]
